FAERS Safety Report 16542023 (Version 1)
Quarter: 2019Q3

REPORT INFORMATION
  Report Type: Other
  Country: CN (occurrence: CN)
  Receive Date: 20190708
  Receipt Date: 20190708
  Transmission Date: 20191004
  Serious: Yes (Hospitalization)
  Sender: FDA-Public Use
  Company Number: CN-GE HEALTHCARE LIFE SCIENCES-2019CSU003499

PATIENT

DRUGS (3)
  1. VISIPAQUE [Suspect]
     Active Substance: IODIXANOL
     Indication: ANGIOCARDIOGRAM
     Dosage: 16 G, SINGLE
     Route: 013
     Dates: start: 20190618, end: 20190618
  2. VISIPAQUE [Suspect]
     Active Substance: IODIXANOL
     Indication: CHEST DISCOMFORT
  3. VISIPAQUE [Suspect]
     Active Substance: IODIXANOL
     Indication: DIZZINESS

REACTIONS (2)
  - Nodal rhythm [Recovered/Resolved]
  - Anaphylactic shock [Recovering/Resolving]

NARRATIVE: CASE EVENT DATE: 20190618
